FAERS Safety Report 8101806-8 (Version None)
Quarter: 2012Q1

REPORT INFORMATION
  Report Type: 
  Country: None (occurrence: None)
  Receive Date: 20120131
  Receipt Date: 20120124
  Transmission Date: 20120608
  Serious: Yes (Hospitalization, Other)
  Sender: FDA-Public Use
  Company Number: PHHY2011FR95333

PATIENT
  Sex: Male

DRUGS (7)
  1. EXELON [Suspect]
     Dosage: 9.5 MG /24 HR, 1 DF DAILY
     Route: 062
     Dates: start: 20100101
  2. MODOPAR [Interacting]
     Dosage: 50 LEVODOPA/ 12.5 BESERAZIDE, 4 DF, DAILY
     Dates: start: 20060101
  3. IMOVANE [Interacting]
     Dosage: 1 DF, DAILY
     Dates: end: 20111003
  4. MODOPAR [Interacting]
     Dosage: 3 DF, DAILY
     Dates: start: 20111004
  5. PROPRANOLOL [Concomitant]
     Dosage: 0.5 DF, BID
  6. ATARAX [Interacting]
     Dosage: 0.5 DF, AT NIGHT.
     Route: 048
     Dates: end: 20111003
  7. ASPIRIN [Concomitant]
     Dosage: 75 MG, ONCE DAILY
     Route: 048
     Dates: start: 20091201

REACTIONS (11)
  - CARDIAC MURMUR [None]
  - DRUG INTERACTION [None]
  - DROP ATTACKS [None]
  - SOMNOLENCE [None]
  - THROMBOCYTOPENIA [None]
  - COMA SCALE ABNORMAL [None]
  - ECCHYMOSIS [None]
  - RHABDOMYOLYSIS [None]
  - BLOOD CREATINE PHOSPHOKINASE INCREASED [None]
  - FALL [None]
  - BLOOD PRESSURE FLUCTUATION [None]
